FAERS Safety Report 11403193 (Version 5)
Quarter: 2015Q4

REPORT INFORMATION
  Report Type: Spontaneous
  Country: JP (occurrence: JP)
  Receive Date: 20150821
  Receipt Date: 20151006
  Transmission Date: 20160304
  Serious: Yes (Hospitalization, Other)
  Sender: FDA-Public Use
  Company Number: PHJP2015JP014108

PATIENT
  Age: 70 Year
  Sex: Female

DRUGS (6)
  1. CARBOPLATIN. [Suspect]
     Active Substance: CARBOPLATIN
     Dosage: 550 MG, UNK
     Route: 042
     Dates: start: 20150115, end: 20150115
  2. DOCETAXEL. [Suspect]
     Active Substance: DOCETAXEL
     Indication: PRODUCT USED FOR UNKNOWN INDICATION
     Dosage: 100 MG, UNK
     Route: 042
     Dates: start: 20141120, end: 20141120
  3. ZOMETA [Suspect]
     Active Substance: ZOLEDRONIC ACID
     Indication: MALIGNANT ASCITES
     Dosage: 4 MG, UNK
     Route: 033
     Dates: start: 20141120, end: 20141120
  4. ZOMETA [Suspect]
     Active Substance: ZOLEDRONIC ACID
     Dosage: 4 MG, UNK
     Route: 033
     Dates: start: 20150119, end: 20150119
  5. DOCETAXEL. [Suspect]
     Active Substance: DOCETAXEL
     Dosage: 100 MG, UNK
     Route: 042
     Dates: start: 20150115, end: 20150115
  6. CARBOPLATIN. [Suspect]
     Active Substance: CARBOPLATIN
     Indication: PRODUCT USED FOR UNKNOWN INDICATION
     Dosage: 560 MG, UNK
     Route: 042
     Dates: start: 20141120, end: 20141120

REACTIONS (8)
  - Lymphocyte count decreased [Recovered/Resolved]
  - Off label use [Unknown]
  - Lymphocyte count decreased [Recovered/Resolved]
  - Hypophosphataemia [Recovered/Resolved]
  - Hypophosphataemia [Recovered/Resolved]
  - Febrile neutropenia [Unknown]
  - Abdominal infection [Recovering/Resolving]
  - Incorrect route of drug administration [Unknown]

NARRATIVE: CASE EVENT DATE: 20141122
